FAERS Safety Report 10878708 (Version 1)
Quarter: 2015Q1

REPORT INFORMATION
  Report Type: Spontaneous
  Country: US (occurrence: None)
  Receive Date: 20150224
  Receipt Date: 20150224
  Transmission Date: 20150721
  Serious: No
  Sender: FDA-Public Use
  Company Number: None

PATIENT
  Age: 28 Year
  Sex: Female
  Weight: 57.15 kg

DRUGS (4)
  1. TAMIFLU [Suspect]
     Active Substance: OSELTAMIVIR PHOSPHATE
     Indication: INFLUENZA
     Dosage: 1
     Route: 048
     Dates: start: 20150218, end: 20150220
  2. PREDNISONE. [Concomitant]
     Active Substance: PREDNISONE
  3. HYDROXYZINE [Concomitant]
     Active Substance: HYDROXYZINE\HYDROXYZINE HYDROCHLORIDE
  4. CORTIZONE CREAM [Concomitant]

REACTIONS (3)
  - Gait disturbance [None]
  - Rash pruritic [None]
  - Pain [None]

NARRATIVE: CASE EVENT DATE: 20150219
